FAERS Safety Report 7963179-0 (Version None)
Quarter: 2011Q4

REPORT INFORMATION
  Report Type: 
  Country: None (occurrence: None)
  Receive Date: 20111208
  Receipt Date: 20111130
  Transmission Date: 20120403
  Serious: Yes (Other)
  Sender: FDA-Public Use
  Company Number: BE-AMGEN-BELSP2011058948

PATIENT
  Age: 54 Year
  Sex: Male

DRUGS (7)
  1. ENBREL [Suspect]
     Indication: ANKYLOSING SPONDYLITIS
     Dosage: 50 MG, QWK
     Route: 058
     Dates: start: 20071201, end: 20110401
  2. FORADIL [Concomitant]
     Dosage: UNK
  3. SPIRIVA [Concomitant]
     Dosage: UNK
  4. ALLOPURINOL [Concomitant]
     Indication: GOUTY ARTHRITIS
     Dosage: 100 MG, 1X/DAY
     Dates: start: 20100701
  5. D-VITAL CALCIUM [Concomitant]
     Dosage: UNK
  6. IBUPROFEN [Concomitant]
     Dosage: UNK
  7. FLUTICASONE PROPIONATE/SALMETEROL [Concomitant]
     Dosage: UNK

REACTIONS (1)
  - BRONCHIAL CARCINOMA [None]
